FAERS Safety Report 23266446 (Version 1)
Quarter: 2023Q4

REPORT INFORMATION
  Report Type: Spontaneous
  Country: BE (occurrence: BE)
  Receive Date: 20231206
  Receipt Date: 20231206
  Transmission Date: 20240110
  Serious: Yes (Hospitalization)
  Sender: FDA-Public Use
  Company Number: None

PATIENT
  Sex: Female

DRUGS (1)
  1. CIPROFLOXACIN [Suspect]
     Active Substance: CIPROFLOXACIN
     Route: 048

REACTIONS (16)
  - Tachycardia [Recovered/Resolved]
  - Agitation [Unknown]
  - Dizziness [Unknown]
  - Gait disturbance [Unknown]
  - Dizziness postural [Unknown]
  - Aphasia [Unknown]
  - Anxiety [Unknown]
  - Heart rate irregular [Recovered/Resolved]
  - Malaise [Unknown]
  - Sleep disorder [Unknown]
  - Muscular weakness [Unknown]
  - Nervousness [Unknown]
  - Irritability [Unknown]
  - Dizziness [Unknown]
  - Confusional state [Unknown]
  - Heart rate increased [Recovered/Resolved]
